FAERS Safety Report 8913857 (Version 2)
Quarter: 2012Q4

REPORT INFORMATION
  Report Type: 
  Country: CN (occurrence: CN)
  Receive Date: 20121119
  Receipt Date: 20121210
  Transmission Date: 20130627
  Serious: Yes (Other)
  Sender: FDA-Public Use
  Company Number: CN-JNJFOC-20121106830

PATIENT

DRUGS (3)
  1. TRAMADOL/APAP [Suspect]
     Indication: ANALGESIC THERAPY
     Dosage: 1 tablet 3 times a day
     Route: 048
  2. BUTORPHANOL [Suspect]
     Indication: ANALGESIC THERAPY
     Route: 042
  3. NEFOPAM [Suspect]
     Indication: ANALGESIC THERAPY
     Dosage: for 50 hours
     Route: 042

REACTIONS (1)
  - Atrial fibrillation [Unknown]
